FAERS Safety Report 6188708-1 (Version None)
Quarter: 2009Q2

REPORT INFORMATION
  Report Type: 
  Country: None (occurrence: None)
  Receive Date: 20090513
  Receipt Date: 20090507
  Transmission Date: 20091009
  Serious: Yes (Hospitalization)
  Sender: FDA-Public Use
  Company Number: US-WATSON-2009-03267

PATIENT
  Age: 43 Year
  Sex: Female

DRUGS (2)
  1. FENTANYL-25 [Suspect]
     Indication: PAIN
     Dosage: 1 PATCH, Q 3 DAYS
     Route: 062
     Dates: start: 20090414
  2. FENTANYL-25 [Suspect]
     Dosage: 1 PATCH, Q 3 DAYS
     Route: 062
     Dates: start: 20090414

REACTIONS (3)
  - DISORIENTATION [None]
  - OVERDOSE [None]
  - SUICIDAL BEHAVIOUR [None]
